FAERS Safety Report 25585783 (Version 1)
Quarter: 2025Q3

REPORT INFORMATION
  Report Type: Spontaneous
  Country: US (occurrence: US)
  Receive Date: 20250721
  Receipt Date: 20250721
  Transmission Date: 20251021
  Serious: No
  Sender: IPSEN BIOPHARMACEUTICALS, INC.
  Company Number: US-IPSEN Group, Research and Development-2025-17228

PATIENT
  Age: 54 Year
  Sex: Female

DRUGS (6)
  1. DYSPORT [Suspect]
     Active Substance: ABOBOTULINUMTOXINA
     Indication: Skin cosmetic procedure
  2. DYSPORT [Suspect]
     Active Substance: ABOBOTULINUMTOXINA
  3. BOTOX [Concomitant]
     Active Substance: ONABOTULINUMTOXINA
     Indication: Skin cosmetic procedure
  4. JEUVEAU [Concomitant]
     Active Substance: PRABOTULINUMTOXINA-XVFS
     Indication: Skin cosmetic procedure
  5. HYALURONIC ACID [Concomitant]
     Active Substance: HYALURONIC ACID
     Indication: Skin cosmetic procedure
  6. PROGESTERONE [Concomitant]
     Active Substance: PROGESTERONE
     Indication: Progesterone

REACTIONS (5)
  - Lip pain [Recovering/Resolving]
  - Lip swelling [Recovering/Resolving]
  - Intentional product misuse [Unknown]
  - Product preparation issue [Unknown]
  - Product administered at inappropriate site [Unknown]

NARRATIVE: CASE EVENT DATE: 20250709
